FAERS Safety Report 9905337 (Version 2)
Quarter: 2014Q2

REPORT INFORMATION
  Report Type: Report from Study
  Country: VE (occurrence: VE)
  Receive Date: 20140218
  Receipt Date: 20140428
  Transmission Date: 20141212
  Serious: Yes (Hospitalization, Other)
  Sender: FDA-Public Use
  Company Number: VE-ABBVIE-14P-178-1201517-00

PATIENT
  Age: 53 Year
  Sex: Female

DRUGS (1)
  1. HUMIRA [Suspect]
     Indication: RHEUMATOID ARTHRITIS
     Route: 058
     Dates: start: 20120702, end: 201310

REACTIONS (5)
  - Diabetic coma [Recovered/Resolved]
  - Necrosis [Recovering/Resolving]
  - Diabetes mellitus [Unknown]
  - Streptococcal infection [Unknown]
  - Tendon injury [Unknown]
